FAERS Safety Report 13332844 (Version 2)
Quarter: 2017Q3

REPORT INFORMATION
  Report Type: Spontaneous
  Country: US (occurrence: US)
  Receive Date: 20170314
  Receipt Date: 20170913
  Transmission Date: 20171127
  Serious: Yes (Other)
  Sender: FDA-Public Use
  Company Number: US-PFIZER INC-2017104387

PATIENT
  Age: 65 Year
  Sex: Male
  Weight: 94.35 kg

DRUGS (5)
  1. LYRICA [Suspect]
     Active Substance: PREGABALIN
     Dosage: 100 MG, 3X/DAY
     Route: 048
  2. LEVOTHYROXINE. [Concomitant]
     Active Substance: LEVOTHYROXINE
     Indication: HYPOTHYROIDISM
     Dosage: 25 UG, 1X/DAY (AT BEDTIME)
     Dates: start: 2007
  3. XELJANZ XR [Concomitant]
     Active Substance: TOFACITINIB CITRATE
     Indication: RHEUMATOID ARTHRITIS
     Dosage: 11 MG, 1X/DAY
     Dates: start: 201611
  4. LYRICA [Suspect]
     Active Substance: PREGABALIN
     Indication: RHEUMATOID ARTHRITIS
     Dosage: 75 MG, 2X/DAY
     Route: 048
     Dates: start: 201611
  5. LISINOPRIL. [Concomitant]
     Active Substance: LISINOPRIL
     Indication: HYPERTENSION
     Dosage: 20 MG, 1X/DAY
     Dates: start: 2009

REACTIONS (8)
  - Gait disturbance [Recovered/Resolved]
  - Influenza like illness [Unknown]
  - Dizziness [Unknown]
  - Feeling abnormal [Unknown]
  - Drug ineffective for unapproved indication [Unknown]
  - Pyrexia [Recovered/Resolved]
  - Joint swelling [Recovered/Resolved]
  - Pain of skin [Unknown]

NARRATIVE: CASE EVENT DATE: 201611
